FAERS Safety Report 17490345 (Version 1)
Quarter: 2020Q1

REPORT INFORMATION
  Report Type: Spontaneous
  Country: US (occurrence: US)
  Receive Date: 20200303
  Receipt Date: 20200303
  Transmission Date: 20200409
  Serious: No
  Sender: FDA-Public Use
  Company Number: US-AKORN PHARMACEUTICALS-2019AKN00485

PATIENT
  Age: 46 Year
  Sex: Female
  Weight: 86.17 kg

DRUGS (8)
  1. MYORISAN [Suspect]
     Active Substance: ISOTRETINOIN
     Indication: ROSACEA
     Dosage: 40 MG, 1X/DAY
     Route: 048
     Dates: start: 20190103, end: 20190222
  2. CLINDAMYCIN. [Concomitant]
     Active Substance: CLINDAMYCIN
  3. TRETINOIN. [Concomitant]
     Active Substance: TRETINOIN
  4. ORACEA [Concomitant]
     Active Substance: DOXYCYCLINE
     Dosage: 40 MG, 1X/DAY
  5. IVERMECTIN. [Concomitant]
     Active Substance: IVERMECTIN
     Route: 061
  6. DOXYCYCLINE. [Concomitant]
     Active Substance: DOXYCYCLINE
     Dosage: 100 MG
  7. LISINOPRIL. [Concomitant]
     Active Substance: LISINOPRIL
     Dosage: 10 MG, 1X/DAY
  8. SULFUR WASH [Concomitant]

REACTIONS (7)
  - Contraindicated product administered [Recovered/Resolved]
  - Arthralgia [Recovered/Resolved]
  - Exfoliative rash [Recovered/Resolved]
  - Product use in unapproved indication [Recovered/Resolved]
  - Crying [Unknown]
  - Rash erythematous [Recovered/Resolved]
  - Off label use [Recovered/Resolved]

NARRATIVE: CASE EVENT DATE: 20190103
